FAERS Safety Report 9161891 (Version 1)
Quarter: 2013Q1

REPORT INFORMATION
  Report Type: Spontaneous
  Country: JP (occurrence: None)
  Receive Date: 20130225
  Receipt Date: 20130225
  Transmission Date: 20140127
  Serious: Yes (Hospitalization)
  Sender: FDA-Public Use
  Company Number: 2013-000454

PATIENT
  Age: 80 Year
  Sex: Female

DRUGS (1)
  1. ACTONEL [Suspect]
     Route: 048
     Dates: start: 201102

REACTIONS (5)
  - Atypical femur fracture [None]
  - Pain in extremity [None]
  - Bone disorder [None]
  - Low turnover osteopathy [None]
  - Gait disturbance [None]
